FAERS Safety Report 9029404 (Version 5)
Quarter: 2015Q2

REPORT INFORMATION
  Report Type: Spontaneous
  Country: DK (occurrence: DK)
  Receive Date: 20130125
  Receipt Date: 20150403
  Transmission Date: 20150821
  Serious: Yes (Disabling, Other)
  Sender: FDA-Public Use
  Company Number: DK-BRISTOL-MYERS SQUIBB COMPANY-17297516

PATIENT
  Age: 10 Year
  Sex: Male
  Weight: 56 kg

DRUGS (3)
  1. ABILIFY [Suspect]
     Active Substance: ARIPIPRAZOLE
     Indication: TOURETTE^S DISORDER
     Dosage: 1DF: 1 MG/ML
     Route: 048
     Dates: start: 20110528, end: 20121018
  2. MELATONIN [Concomitant]
     Active Substance: MELATONIN
     Indication: INSOMNIA
     Dosage: UNK
     Route: 065
     Dates: start: 20120614
  3. ABILIFY [Suspect]
     Active Substance: ARIPIPRAZOLE
     Indication: TOURETTE^S DISORDER
     Dosage: DOSE: VARYING PERIOD B/W 3+5MG DAILY. SIDE EFFECTS CEASED WITH APPROX 2MG DAILY.  INCREASED APR12.
     Route: 048
     Dates: start: 20110528, end: 20121018

REACTIONS (8)
  - Petit mal epilepsy [Recovered/Resolved]
  - Weight increased [Recovered/Resolved]
  - Tic [Recovered/Resolved]
  - Suicide attempt [Recovered/Resolved]
  - Off label use [Unknown]
  - Hallucination [Recovered/Resolved]
  - Akathisia [Recovered/Resolved]
  - Ataxia [Unknown]

NARRATIVE: CASE EVENT DATE: 20110612
